FAERS Safety Report 6582278-1 (Version None)
Quarter: 2010Q1

REPORT INFORMATION
  Report Type: 
  Country: None (occurrence: None)
  Receive Date: 20100216
  Receipt Date: 20100211
  Transmission Date: 20100710
  Serious: Yes (Hospitalization, Other)
  Sender: FDA-Public Use
  Company Number: US-ABBOTT-10P-163-0625862-00

PATIENT
  Sex: Female
  Weight: 54.5 kg

DRUGS (2)
  1. HUMIRA [Suspect]
     Indication: PSORIASIS
     Route: 058
     Dates: start: 20090801, end: 20091217
  2. CLOBEX [Concomitant]
     Indication: PSORIASIS
     Route: 061

REACTIONS (1)
  - PANCREATITIS [None]
